FAERS Safety Report 13738628 (Version 1)
Quarter: 2017Q3

REPORT INFORMATION
  Report Type: Spontaneous
  Country: US (occurrence: US)
  Receive Date: 20170710
  Receipt Date: 20170710
  Transmission Date: 20171127
  Serious: No
  Sender: FDA-Public Use
  Company Number: US-SAOL THERAPEUTICS-2017SAO00274

PATIENT
  Age: 46 Year
  Sex: Female

DRUGS (3)
  1. DILAUDID [Suspect]
     Active Substance: HYDROMORPHONE HYDROCHLORIDE
     Dosage: 3.546 MG, \DAY
     Route: 037
  2. CLONIDINE. [Suspect]
     Active Substance: CLONIDINE
     Dosage: 88.66 ?G, \DAY
     Route: 037
  3. COMPOUNDED BACLOFEN [Suspect]
     Active Substance: BACLOFEN
     Indication: PAIN
     Dosage: 556.4 ?G, \DAY
     Route: 037

REACTIONS (5)
  - Drug dose omission [Unknown]
  - Off label use [Unknown]
  - Nausea [Unknown]
  - Pain [Unknown]
  - Restlessness [Unknown]

NARRATIVE: CASE EVENT DATE: 201605
